FAERS Safety Report 9826937 (Version 1)
Quarter: 2013Q4

REPORT INFORMATION
  Report Type: Spontaneous
  Country: US (occurrence: None)
  Receive Date: 20131112
  Receipt Date: 20131112
  Transmission Date: 20140711
  Serious: No
  Sender: FDA-Public Use
  Company Number: US-012894

PATIENT
  Age: 65 Year
  Sex: Female
  Weight: 57.61 kg

DRUGS (3)
  1. PICO-SALAX (NOT SPECIFIED) [Suspect]
     Indication: BOWEL PREPARATION
     Dates: start: 20130829, end: 20130830
  2. LIALDA [Concomitant]
  3. ZOCOR [Concomitant]

REACTIONS (5)
  - Vomiting [None]
  - Nausea [None]
  - Gastrointestinal motility disorder [None]
  - Blood urine [None]
  - Rectal haemorrhage [None]
